FAERS Safety Report 8811199 (Version 1)
Quarter: 2012Q4

REPORT INFORMATION
  Report Type: Spontaneous
  Country: US (occurrence: None)
  Receive Date: 20120924
  Receipt Date: 20120924
  Transmission Date: 20130627
  Serious: Yes (Other)
  Sender: FDA-Public Use
  Company Number: None

PATIENT
  Age: 29 Year
  Sex: Female
  Weight: 117.94 kg

DRUGS (2)
  1. METAXALONE [Suspect]
     Indication: HERNIATED DISC
     Route: 048
     Dates: start: 20120919, end: 20120920
  2. METAXALONE [Suspect]
     Indication: MUSCLE TENSION
     Route: 048
     Dates: start: 20120919, end: 20120920

REACTIONS (2)
  - Rash pruritic [None]
  - Rash generalised [None]
